FAERS Safety Report 12649206 (Version 2)
Quarter: 2016Q3

REPORT INFORMATION
  Report Type: Spontaneous
  Country: US (occurrence: US)
  Receive Date: 20160812
  Receipt Date: 20160907
  Transmission Date: 20161109
  Serious: No
  Sender: FDA-Public Use
  Company Number: US-SHIRE-US201609434

PATIENT
  Age: 32 Year
  Sex: Female
  Weight: 65.76 kg

DRUGS (1)
  1. LIALDA [Suspect]
     Active Substance: MESALAMINE
     Indication: COLITIS ULCERATIVE
     Dosage: 4.8 G, 1X/DAY:QD (4 1.2 G TABLETS IN AM)
     Route: 048
     Dates: start: 2008

REACTIONS (10)
  - Malaise [Not Recovered/Not Resolved]
  - Lethargy [Not Recovered/Not Resolved]
  - Product quality issue [Unknown]
  - Nausea [Not Recovered/Not Resolved]
  - Abdominal pain upper [Not Recovered/Not Resolved]
  - Unevaluable event [Unknown]
  - Medication residue present [Recovered/Resolved]
  - Eructation [Not Recovered/Not Resolved]
  - Pregnancy [Recovered/Resolved]
  - Abdominal distension [Recovered/Resolved]

NARRATIVE: CASE EVENT DATE: 2014
